FAERS Safety Report 6633303-0 (Version None)
Quarter: 2010Q1

REPORT INFORMATION
  Report Type: 
  Country: None (occurrence: None)
  Receive Date: 20100312
  Receipt Date: 20091216
  Transmission Date: 20100710
  Serious: No
  Sender: FDA-Public Use
  Company Number: US-ABBOTT-08P-163-0477194-00

PATIENT
  Sex: Female
  Weight: 37.228 kg

DRUGS (10)
  1. ERYTHROMYCIN [Suspect]
     Indication: IMPAIRED GASTRIC EMPTYING
     Route: 048
     Dates: start: 19880501, end: 20080901
  2. ERYTHROMYCIN [Suspect]
     Indication: GASTROINTESTINAL MOTILITY DISORDER
     Route: 048
     Dates: start: 19980501, end: 20080901
  3. ERYTHROMYCIN ETHYLSUCCINATE [Suspect]
     Indication: GASTROINTESTINAL MOTILITY DISORDER
     Dates: start: 20080901
  4. ERYPED [Suspect]
     Indication: IMPAIRED GASTRIC EMPTYING
  5. ZESTRIL [Suspect]
     Indication: BLOOD PRESSURE
     Route: 048
  6. PREVACID [Concomitant]
     Indication: ABDOMINAL DISCOMFORT
     Route: 048
  7. HORMONES NOS [Concomitant]
     Indication: HORMONE REPLACEMENT THERAPY
     Route: 062
  8. CODEINE, PHENOBARB ELIXIR [Concomitant]
     Indication: PAIN
     Route: 048
  9. ATENOLOL [Concomitant]
     Indication: BLOOD PRESSURE
     Route: 048
  10. ESTROGEN [Concomitant]
     Indication: DRUG USE FOR UNKNOWN INDICATION
     Dosage: PATCHES

REACTIONS (11)
  - ABDOMINAL DISTENSION [None]
  - BACK PAIN [None]
  - BONE DENSITY DECREASED [None]
  - DRUG INEFFECTIVE [None]
  - HEADACHE [None]
  - HEART RATE INCREASED [None]
  - IMPAIRED GASTRIC EMPTYING [None]
  - MIGRAINE [None]
  - OEDEMA MOUTH [None]
  - PAIN [None]
  - WEIGHT DECREASED [None]
